FAERS Safety Report 7102654-8 (Version None)
Quarter: 2010Q4

REPORT INFORMATION
  Report Type: 
  Country: None (occurrence: None)
  Receive Date: 20101108
  Receipt Date: 20050504
  Transmission Date: 20110411
  Serious: Yes (Death, Hospitalization, Other)
  Sender: FDA-Public Use
  Company Number: DSA_44208_2010

PATIENT
  Age: 75 Year
  Sex: Female

DRUGS (16)
  1. DILTIAZEM HCL [Suspect]
     Indication: HYPERTENSION
     Dosage: (DF)
     Dates: end: 20020301
  2. ARAVA [Suspect]
     Indication: RHEUMATOID ARTHRITIS
     Dosage: (20 MG DAILY ORAL)
     Route: 048
     Dates: start: 20020301
  3. CO-CODAMOL (CO-CODAMOL-CODEINE PHOSPHATE/PARACETAMOL) [Suspect]
     Indication: RHEUMATOID ARTHRITIS
     Dosage: (DF)
     Dates: start: 20020301
  4. ASPIRIN [Suspect]
     Indication: PAIN
     Dosage: (DF)
     Dates: start: 20020301
  5. BUDESONIDE [Suspect]
     Indication: ASTHMA
     Dosage: (DF)
     Dates: start: 20020301
  6. LANSOPRAZOLE [Suspect]
     Indication: DUODENAL ULCER
     Dosage: (DF)
     Dates: start: 20020301
  7. LISINOPRIL [Suspect]
     Indication: HYPERTENSION
     Dosage: (DF)
     Dates: start: 20020301
  8. GLYCERYL TRINITRATE (GLYCERYL TRINITRATE) [Suspect]
     Indication: PAIN
     Dosage: (DF ORAL)
     Route: 048
     Dates: start: 20020301
  9. ATORVASTATIN (ATORVASTATIN) [Suspect]
     Indication: HYPERCHOLESTEROLAEMIA
     Dosage: (DF)
     Dates: start: 19990101
  10. QUININE SULFATE (QUININE SULFATE) [Suspect]
     Indication: MUSCLE SPASMS
     Dosage: (DF)
  11. PROPOFOL [Suspect]
     Indication: ANAESTHESIA
     Dosage: (DF INTRAVENOUS)
     Route: 042
     Dates: start: 20020301, end: 20020301
  12. MIDAZOLAM HCL [Suspect]
     Indication: ANAESTHESIA
     Dosage: (DF INTRAVENOUS)
     Route: 042
     Dates: start: 20020301, end: 20020301
  13. FENTANYL-100 [Suspect]
     Indication: ANAESTHESIA
     Dosage: (DF INTRAVENOUS)
     Route: 042
     Dates: start: 20020301, end: 20020301
  14. PANCURONIUM (PANCURONIUM) [Suspect]
     Indication: MUSCLE RELAXANT THERAPY
     Dosage: (DF)
     Dates: start: 20020301, end: 20020301
  15. FLIXONASE [Concomitant]
  16. NITROGLYCERIN [Concomitant]

REACTIONS (15)
  - COAGULATION TIME ABNORMAL [None]
  - CORONARY ARTERY DISEASE [None]
  - DIVERTICULITIS [None]
  - DUODENAL ULCER [None]
  - HEPATIC ISCHAEMIA [None]
  - HEPATOCELLULAR INJURY [None]
  - HEPATORENAL SYNDROME [None]
  - HYPOVOLAEMIA [None]
  - INTESTINAL ISCHAEMIA [None]
  - LABILE BLOOD PRESSURE [None]
  - MULTI-ORGAN FAILURE [None]
  - RENAL FAILURE [None]
  - RENAL ISCHAEMIA [None]
  - RENAL TUBULAR NECROSIS [None]
  - UPPER GASTROINTESTINAL HAEMORRHAGE [None]
